FAERS Safety Report 8541299 (Version 2)
Quarter: 2014Q1

REPORT INFORMATION
  Report Type: Spontaneous
  Country: US (occurrence: US)
  Receive Date: 20120502
  Receipt Date: 20140227
  Transmission Date: 20141002
  Serious: Yes (Hospitalization)
  Sender: FDA-Public Use
  Company Number: US-GLAXOSMITHKLINE-A0861777A

PATIENT
  Age: 54 Year
  Sex: Male

DRUGS (2)
  1. AVANDIA [Suspect]
     Indication: DIABETES MELLITUS
     Dosage: 8MG PER DAY
     Route: 048
     Dates: start: 20070119, end: 20070810
  2. AVANDAMET [Suspect]
     Route: 048
     Dates: start: 200402, end: 20040927

REACTIONS (1)
  - Myocardial infarction [Not Recovered/Not Resolved]
